FAERS Safety Report 13643068 (Version 2)
Quarter: 2017Q2

REPORT INFORMATION
  Report Type: Report from Study
  Country: SE (occurrence: SE)
  Receive Date: 20170612
  Receipt Date: 20170616
  Transmission Date: 20170830
  Serious: Yes (Death, Hospitalization, Other)
  Sender: FDA-Public Use
  Company Number: SE-INCYTE CORPORATION-2017IN004045

PATIENT

DRUGS (4)
  1. CALCICHEW-D3 [Concomitant]
     Active Substance: CALCIUM\CHOLECALCIFEROL
     Indication: OSTEOPOROSIS
     Dosage: 500MG/400IE
     Route: 065
     Dates: start: 20150309
  2. PREDNISOLONE. [Concomitant]
     Active Substance: PREDNISOLONE
     Indication: WEIGHT DECREASED
     Dosage: 10 MG, UNK
     Route: 065
     Dates: start: 20170110
  3. PREDNISOLONE. [Concomitant]
     Active Substance: PREDNISOLONE
     Indication: GENERAL PHYSICAL HEALTH DETERIORATION
  4. JAKAVI [Suspect]
     Active Substance: RUXOLITINIB
     Indication: PRIMARY MYELOFIBROSIS
     Dosage: 5 MG, QD
     Route: 048
     Dates: start: 20161229, end: 20170315

REACTIONS (11)
  - Thrombocytopenia [Unknown]
  - Blood creatinine decreased [Unknown]
  - Death [Fatal]
  - Urinary tract infection enterococcal [Recovering/Resolving]
  - Renal haemorrhage [Unknown]
  - Pancytopenia [Unknown]
  - Pyelonephritis [Unknown]
  - Thrombocytosis [Unknown]
  - C-reactive protein decreased [Unknown]
  - Renal impairment [Recovering/Resolving]
  - Neutropenia [Recovering/Resolving]

NARRATIVE: CASE EVENT DATE: 20170301
